FAERS Safety Report 25484138 (Version 2)
Quarter: 2025Q3

REPORT INFORMATION
  Report Type: Spontaneous
  Country: US (occurrence: US)
  Receive Date: 20250626
  Receipt Date: 20250805
  Transmission Date: 20251020
  Serious: No
  Sender: SANOFI AVENTIS
  Company Number: US-SA-2025SA178391

PATIENT
  Sex: Male
  Weight: 94.55 kg

DRUGS (9)
  1. KEVZARA [Suspect]
     Active Substance: SARILUMAB
     Indication: Rheumatoid arthritis
     Dosage: 200 MG, QOW
     Route: 058
  2. KEVZARA [Suspect]
     Active Substance: SARILUMAB
     Indication: Product used for unknown indication
  3. KEVZARA [Suspect]
     Active Substance: SARILUMAB
     Indication: Ligament sprain
  4. KEVZARA [Suspect]
     Active Substance: SARILUMAB
     Indication: Arthralgia
  5. KEVZARA [Suspect]
     Active Substance: SARILUMAB
     Indication: Joint effusion
  6. KEVZARA [Suspect]
     Active Substance: SARILUMAB
     Indication: Drug therapy
  7. METHOTREXATE [Concomitant]
     Active Substance: METHOTREXATE
  8. ATORVASTATIN CALCIUM [Concomitant]
     Active Substance: ATORVASTATIN CALCIUM
  9. OXYCODONE HYDROCHLORIDE [Concomitant]
     Active Substance: OXYCODONE HYDROCHLORIDE

REACTIONS (4)
  - Condition aggravated [Unknown]
  - Injection site pain [Unknown]
  - Injection site erythema [Recovered/Resolved]
  - Product use in unapproved indication [Unknown]
